FAERS Safety Report 4358873-7 (Version None)
Quarter: 2004Q2

REPORT INFORMATION
  Report Type: 
  Country: None (occurrence: None)
  Receive Date: 20040512
  Receipt Date: 20040422
  Transmission Date: 20050107
  Serious: Yes (Hospitalization)
  Sender: FDA-Public Use
  Company Number: US_0404102504

PATIENT
  Age: 48 Year
  Sex: Female

DRUGS (3)
  1. CECLOR [Suspect]
     Indication: INFECTION PROPHYLAXIS
     Dosage: 750 MG
     Route: 048
     Dates: start: 20040402, end: 20040407
  2. SELBEX (TEPRENONE) [Concomitant]
  3. LOXONIN (LOXOPROFEN SODIUM) [Concomitant]

REACTIONS (4)
  - ASPARTATE AMINOTRANSFERASE INCREASED [None]
  - HEPATIC FUNCTION ABNORMAL [None]
  - MALAISE [None]
  - PYREXIA [None]
